FAERS Safety Report 6241603-1 (Version None)
Quarter: 2009Q2

REPORT INFORMATION
  Report Type: 
  Country: None (occurrence: None)
  Receive Date: 20090623
  Receipt Date: 20050217
  Transmission Date: 20091009
  Serious: Yes (Death, Hospitalization)
  Sender: FDA-Public Use
  Company Number: DE-ROCHE-386561

PATIENT
  Sex: Male
  Weight: 80 kg

DRUGS (42)
  1. DACLIZUMAB [Suspect]
     Route: 042
     Dates: start: 20041021
  2. DACLIZUMAB [Suspect]
     Route: 042
     Dates: start: 20041104, end: 20041128
  3. MYCOPHENOLATE MOFETIL [Suspect]
     Route: 048
     Dates: start: 20041022
  4. MYCOPHENOLATE MOFETIL [Suspect]
     Route: 048
     Dates: start: 20041113, end: 20041114
  5. TACROLIMUS [Suspect]
     Route: 048
     Dates: start: 20041021, end: 20041128
  6. URBASON [Suspect]
     Route: 042
     Dates: start: 20041021
  7. URBASON [Suspect]
     Route: 042
     Dates: start: 20041103
  8. URBASON [Suspect]
     Route: 042
     Dates: start: 20041116
  9. VALCYTE [Concomitant]
     Route: 048
     Dates: start: 20041023
  10. VALCYTE [Concomitant]
     Route: 048
     Dates: start: 20041029
  11. VALCYTE [Concomitant]
     Route: 048
     Dates: start: 20041102
  12. VALCYTE [Concomitant]
     Route: 048
     Dates: start: 20041103
  13. VALCYTE [Concomitant]
     Route: 048
     Dates: start: 20041105, end: 20041107
  14. VALCYTE [Concomitant]
     Route: 048
     Dates: start: 20041108
  15. VALCYTE [Concomitant]
     Route: 048
     Dates: start: 20041117
  16. PRAVASTATIN SODIUM [Concomitant]
     Route: 048
     Dates: start: 20041022, end: 20041129
  17. BELOC-ZOK MITE [Concomitant]
     Dosage: DOSE REPORTED AS 1/2-0-1/2
  18. LIQUAEMIN INJ [Concomitant]
  19. METOPROLOL SUCCINATE [Concomitant]
     Route: 048
     Dates: start: 20041023, end: 20041129
  20. CORDAREX [Concomitant]
     Route: 048
     Dates: start: 20041022
  21. CEFAZOLIN [Concomitant]
     Route: 042
     Dates: start: 20041021, end: 20041027
  22. CEFAZOLIN [Concomitant]
     Route: 042
     Dates: start: 20041029, end: 20041108
  23. CEFPODOXIME PROXETIL [Concomitant]
     Dosage: DRUG REPORTED: CEFPODOXIM
     Route: 048
     Dates: start: 20041123
  24. CILASTATIN SODIUM [Concomitant]
     Dosage: DRUG REPORTED: CILASTATIN-NATRIUM
     Route: 042
     Dates: start: 20041124
  25. CILASTATIN SODIUM [Concomitant]
     Route: 042
     Dates: start: 20041125
  26. DIFLUCAN [Concomitant]
     Route: 048
     Dates: start: 20041031
  27. FUROSEMID [Concomitant]
     Route: 042
     Dates: start: 20041123
  28. INSULIN [Concomitant]
     Route: 058
     Dates: start: 20041116, end: 20041124
  29. INSULIN [Concomitant]
     Route: 058
     Dates: start: 20041125
  30. URBASON [Suspect]
     Route: 048
     Dates: start: 20041024
  31. URBASON [Suspect]
     Route: 048
     Dates: start: 20041106
  32. URBASON [Suspect]
     Route: 048
     Dates: start: 20041122
  33. CORVATON [Concomitant]
     Route: 048
     Dates: start: 20041104
  34. MOXIFLOXACIN HCL [Concomitant]
     Route: 042
     Dates: start: 20041109
  35. PIPERACILLIN [Concomitant]
     Route: 042
     Dates: start: 20041110, end: 20041121
  36. SULBACTAM-NATRIUM [Concomitant]
     Route: 042
     Dates: start: 20041110, end: 20041121
  37. VANCOMYCIN [Concomitant]
     Dosage: FREQUENCY: 1/-- WEEK
     Route: 042
     Dates: start: 20041021
  38. VANCOMYCIN [Concomitant]
     Route: 042
     Dates: start: 20041029, end: 20041030
  39. VANCOMYCIN [Concomitant]
     Route: 042
     Dates: start: 20041104, end: 20041111
  40. VANCOMYCIN [Concomitant]
     Route: 042
     Dates: start: 20041115
  41. CYCLOSPORINE [Suspect]
     Route: 065
  42. SIROLIMUS [Suspect]
     Route: 065

REACTIONS (4)
  - PNEUMONIA FUNGAL [None]
  - RETROPERITONEAL HAEMATOMA [None]
  - SEPSIS [None]
  - SUBCUTANEOUS ABSCESS [None]
